FAERS Safety Report 5859585-0 (Version None)
Quarter: 2008Q3

REPORT INFORMATION
  Report Type: 
  Country: None (occurrence: None)
  Receive Date: 20080827
  Receipt Date: 20080826
  Transmission Date: 20090109
  Serious: Yes (Other)
  Sender: FDA-Public Use
  Company Number: D0058475A

PATIENT
  Sex: Female

DRUGS (1)
  1. ALKERAN [Suspect]
     Indication: PLASMACYTOMA
     Dosage: 50MG SEE DOSAGE TEXT
     Route: 042
     Dates: start: 20070101

REACTIONS (3)
  - ANAEMIA [None]
  - DYSPNOEA [None]
  - TACHYCARDIA [None]
